FAERS Safety Report 6294404-2 (Version None)
Quarter: 2009Q3

REPORT INFORMATION
  Report Type: 
  Country: None (occurrence: None)
  Receive Date: 20090803
  Receipt Date: 20090720
  Transmission Date: 20100115
  Serious: Yes (Other)
  Sender: FDA-Public Use
  Company Number: BG-ROCHE-642196

PATIENT
  Age: 58 Year
  Sex: Female

DRUGS (4)
  1. TAMIFLU [Suspect]
     Indication: INFLUENZA
     Route: 048
     Dates: start: 20090630, end: 20090630
  2. FERVEX [Concomitant]
     Route: 048
  3. PARACETAMOL [Concomitant]
     Route: 048
  4. DIPYRONE INJ [Concomitant]
     Dosage: DRUG REPORTED AS ANALGIN/ INN METAMIZOLE SODIUM.
     Route: 048

REACTIONS (5)
  - HYPERTENSION [None]
  - LYMPHADENOPATHY [None]
  - NAUSEA [None]
  - TACHYCARDIA [None]
  - VOMITING [None]
